FAERS Safety Report 16329677 (Version 1)
Quarter: 2019Q2

REPORT INFORMATION
  Report Type: Spontaneous
  Country: US (occurrence: US)
  Receive Date: 20190520
  Receipt Date: 20190520
  Transmission Date: 20190711
  Serious: No
  Sender: FDA-Public Use
  Company Number: US-TEVA-2018-US-913838

PATIENT
  Age: 14 Year
  Sex: Male

DRUGS (17)
  1. ZIPRASIDONE HYDROCHLORIDE. [Concomitant]
     Active Substance: ZIPRASIDONE HYDROCHLORIDE
     Indication: AGGRESSION
     Dosage: 40 MILLIGRAM DAILY;
     Route: 048
  2. ESCITALOPRAM [Concomitant]
     Active Substance: ESCITALOPRAM OXALATE
     Indication: DEPRESSION
     Dosage: NIGHTLY
     Route: 048
  3. CLONIDINE HYDROCHLORIDE. [Suspect]
     Active Substance: CLONIDINE HYDROCHLORIDE
     Indication: ATTENTION DEFICIT/HYPERACTIVITY DISORDER
     Dosage: DOSE INCREASED
     Route: 048
  4. CITALOPRAM [Concomitant]
     Active Substance: CITALOPRAM HYDROBROMIDE
     Indication: ANXIETY
     Dosage: 30 MILLIGRAM DAILY;
     Route: 048
  5. BUPROPION HYDROCHLORIDE. [Concomitant]
     Active Substance: BUPROPION HYDROCHLORIDE
     Indication: ANXIETY
     Dosage: 75 MILLIGRAM DAILY;
     Route: 048
  6. CLONIDINE. [Suspect]
     Active Substance: CLONIDINE
     Indication: ATTENTION DEFICIT/HYPERACTIVITY DISORDER
     Route: 062
  7. FLUVOXAMINE MALEATE. [Concomitant]
     Active Substance: FLUVOXAMINE MALEATE
     Indication: ATTENTION DEFICIT/HYPERACTIVITY DISORDER
     Dosage: 50 MILLIGRAM DAILY;
     Route: 048
  8. DEXMETHYLPHENIDATE [Suspect]
     Active Substance: DEXMETHYLPHENIDATE HYDROCHLORIDE
     Route: 065
  9. GUANFACINE. [Concomitant]
     Active Substance: GUANFACINE
     Indication: ATTENTION DEFICIT/HYPERACTIVITY DISORDER
     Dosage: 2 MILLIGRAM DAILY;
     Route: 048
  10. METHYLPHENIDATE HYDROCHLORIDE. [Concomitant]
     Active Substance: METHYLPHENIDATE HYDROCHLORIDE
     Indication: ATTENTION DEFICIT/HYPERACTIVITY DISORDER
     Dosage: 54 MILLIGRAM DAILY; EXTENDED RELEASE
     Route: 065
  11. LAMOTRIGINE. [Suspect]
     Active Substance: LAMOTRIGINE
     Indication: AGITATION
     Route: 065
  12. QUETIAPINE. [Suspect]
     Active Substance: QUETIAPINE
     Indication: AGGRESSION
     Route: 065
  13. CLONIDINE HYDROCHLORIDE. [Suspect]
     Active Substance: CLONIDINE HYDROCHLORIDE
     Indication: ATTENTION DEFICIT/HYPERACTIVITY DISORDER
     Route: 048
  14. CLONIDINE. [Suspect]
     Active Substance: CLONIDINE
     Indication: ATTENTION DEFICIT/HYPERACTIVITY DISORDER
     Dosage: .1 MILLIGRAM DAILY;
     Route: 062
  15. AMPHETAMINE-DEXTROAMPHETAMINE [Suspect]
     Active Substance: AMPHETAMINE SULFATE\DEXTROAMPHETAMINE
     Route: 065
  16. ALPRAZOLAM. [Concomitant]
     Active Substance: ALPRAZOLAM
     Indication: ANXIETY
     Dosage: .5 MILLIGRAM DAILY;
     Route: 048
  17. LITHIUM CARBONATE. [Concomitant]
     Active Substance: LITHIUM CARBONATE
     Indication: DEPRESSION
     Dosage: 750 MILLIGRAM DAILY;
     Route: 065

REACTIONS (5)
  - Off label use [Unknown]
  - Sedation [Unknown]
  - Hallucination [Unknown]
  - Agitation [Unknown]
  - Rash [Unknown]
